FAERS Safety Report 6055395-2 (Version None)
Quarter: 2009Q1

REPORT INFORMATION
  Report Type: 
  Country: None (occurrence: None)
  Receive Date: 20090128
  Receipt Date: 20090119
  Transmission Date: 20090719
  Serious: Yes (Hospitalization)
  Sender: FDA-Public Use
  Company Number: DE-JNJFOC-20090103946

PATIENT
  Sex: Female

DRUGS (3)
  1. CILEST [Suspect]
     Route: 048
  2. CILEST [Suspect]
     Indication: CONTRACEPTION
     Dosage: USED FOR 4 YEARS AND 2 MONTHS
     Route: 048
  3. AIDA [Suspect]
     Indication: DRUG USE FOR UNKNOWN INDICATION
     Dosage: ETHINYL ESTRADIOL 20 MICG AND DROSPIRENONE 3000 MICG
     Route: 065

REACTIONS (2)
  - PROTEIN S DEFICIENCY [None]
  - THALAMIC INFARCTION [None]
